FAERS Safety Report 9596208 (Version 3)
Quarter: 2013Q4

REPORT INFORMATION
  Report Type: Spontaneous
  Country: US (occurrence: US)
  Receive Date: 20131004
  Receipt Date: 20131205
  Transmission Date: 20140711
  Serious: Yes (Hospitalization, Other)
  Sender: FDA-Public Use
  Company Number: US-BAXTER-2013BAX038619

PATIENT
  Age: 87 Year
  Sex: Female
  Weight: 62.65 kg

DRUGS (2)
  1. GAMMAGARD LIQUID [Suspect]
     Indication: IMMUNODEFICIENCY COMMON VARIABLE
     Route: 042
     Dates: start: 20130822, end: 20130822
  2. PRIVIGEN [Concomitant]
     Indication: PRODUCT USED FOR UNKNOWN INDICATION
     Dates: start: 2012, end: 20130822

REACTIONS (6)
  - Loss of consciousness [Unknown]
  - Multiple injuries [Unknown]
  - Road traffic accident [Unknown]
  - Abdominal pain [Unknown]
  - Confusional state [Unknown]
  - Disorientation [Unknown]
